FAERS Safety Report 12726484 (Version 2)
Quarter: 2016Q3

REPORT INFORMATION
  Report Type: Spontaneous
  Country: VE (occurrence: VE)
  Receive Date: 20160908
  Receipt Date: 20160913
  Transmission Date: 20161109
  Serious: Yes (Other)
  Sender: FDA-Public Use
  Company Number: PHHY2016VE123990

PATIENT
  Sex: Female

DRUGS (9)
  1. STALEVO [Suspect]
     Active Substance: CARBIDOPA\ENTACAPONE\LEVODOPA
     Indication: PARKINSON^S DISEASE
     Dosage: 500 MG, QD
     Route: 048
  2. ENALAPRIL [Concomitant]
     Active Substance: ENALAPRIL
     Indication: BLOOD PRESSURE ABNORMAL
     Dosage: 10 MG, QD
     Route: 065
  3. RIVOTRIL [Concomitant]
     Active Substance: CLONAZEPAM
     Indication: PANIC DISORDER
     Dosage: 2 MG, QD
     Route: 065
  4. AMLODIPINE [Concomitant]
     Active Substance: AMLODIPINE BESYLATE
     Indication: BLOOD PRESSURE ABNORMAL
     Dosage: 5 MG, QD
     Route: 065
  5. STALEVO [Suspect]
     Active Substance: CARBIDOPA\ENTACAPONE\LEVODOPA
     Dosage: 750 MG, QD
     Route: 048
  6. EXELON PATCH [Suspect]
     Active Substance: RIVASTIGMINE
     Indication: PARKINSON^S DISEASE
     Dosage: 9.5 MG, QD (PATCH 15 CM2)
     Route: 062
  7. QUETIDIN [Concomitant]
     Indication: HALLUCINATION
     Dosage: 200 MG, QD
     Route: 065
  8. FLURALEMA [Concomitant]
     Indication: INSOMNIA
     Dosage: 15 MG, QD
     Route: 065
  9. ESOMEPRAZOLE [Concomitant]
     Active Substance: ESOMEPRAZOLE
     Indication: PRODUCT USED FOR UNKNOWN INDICATION
     Dosage: 20 MG, QD
     Route: 065

REACTIONS (2)
  - Product use issue [Unknown]
  - Parkinson^s disease [Recovering/Resolving]
